FAERS Safety Report 21014099 (Version 2)
Quarter: 2022Q3

REPORT INFORMATION
  Report Type: Spontaneous
  Country: US (occurrence: US)
  Receive Date: 20220627
  Receipt Date: 20220720
  Transmission Date: 20221026
  Serious: No
  Sender: FDA-Public Use
  Company Number: US-SA-SAC20220624000921

PATIENT
  Age: 64 Year
  Sex: Female

DRUGS (61)
  1. DUPIXENT [Suspect]
     Active Substance: DUPILUMAB
     Indication: Asthma
     Dosage: 200 MG, QOW
     Route: 058
  2. DUPIXENT [Suspect]
     Active Substance: DUPILUMAB
     Indication: Hypogammaglobulinaemia
  3. XEMBIFY [Suspect]
     Active Substance: HUMAN IMMUNOGLOBULIN G
  4. LIDOCAINE [Concomitant]
     Active Substance: LIDOCAINE
     Indication: Pain
  5. LIDOCAINE [Concomitant]
     Active Substance: LIDOCAINE
  6. EPINEPHRINE [Concomitant]
     Active Substance: EPINEPHRINE
  7. EPINEPHRINE [Concomitant]
     Active Substance: EPINEPHRINE
  8. DIPHENHYDRAMINE [Concomitant]
     Active Substance: DIPHENHYDRAMINE
  9. DIPHENHYDRAMINE [Concomitant]
     Active Substance: DIPHENHYDRAMINE
  10. ACETAMINOPHEN [Concomitant]
     Active Substance: ACETAMINOPHEN
     Indication: Pain
  11. ACETAMINOPHEN [Concomitant]
     Active Substance: ACETAMINOPHEN
  12. XEMBIFY [Concomitant]
     Active Substance: HUMAN IMMUNOGLOBULIN G
  13. MUCINEX [Concomitant]
     Active Substance: GUAIFENESIN
  14. MUCINEX [Concomitant]
     Active Substance: GUAIFENESIN
     Dosage: 1200 MG TAB ER 12H
  15. GAVISCON [ALGELDRATE;ALGINIC ACID;MAGNESIUM TRISILICATE;SODIUM BICARBO [Concomitant]
  16. GLUCOSAMINE + CHONDORITIN [Concomitant]
  17. GLUCOSAMINE + CHONDORITIN [Concomitant]
  18. ALBUTEROL SULFATE [Concomitant]
     Active Substance: ALBUTEROL SULFATE
     Indication: Asthma
     Dosage: 90 MCG
  19. ALBUTEROL SULFATE [Concomitant]
     Active Substance: ALBUTEROL SULFATE
  20. RELPAX [Concomitant]
     Active Substance: ELETRIPTAN HYDROBROMIDE
  21. RELPAX [Concomitant]
     Active Substance: ELETRIPTAN HYDROBROMIDE
  22. AMLODIPINE BESYLATE [Concomitant]
     Active Substance: AMLODIPINE BESYLATE
  23. AMLODIPINE BESYLATE [Concomitant]
     Active Substance: AMLODIPINE BESYLATE
  24. CALCIUM [Concomitant]
     Active Substance: CALCIUM
  25. CALCIUM [Concomitant]
     Active Substance: CALCIUM
  26. VITAMINS NOS [Concomitant]
     Active Substance: VITAMINS
  27. VITAMINS NOS [Concomitant]
     Active Substance: VITAMINS
  28. PROBIOTIC ACIDOPHILUS [LACTOBACILLUS ACIDOPHILUS] [Concomitant]
  29. LEVALBUTEROL HYDROCHLORIDE [Concomitant]
     Active Substance: LEVALBUTEROL HYDROCHLORIDE
  30. LEVALBUTEROL HYDROCHLORIDE [Concomitant]
     Active Substance: LEVALBUTEROL HYDROCHLORIDE
  31. ADVAIR HFA [Concomitant]
     Active Substance: FLUTICASONE PROPIONATE\SALMETEROL XINAFOATE
  32. ADVAIR HFA [Concomitant]
     Active Substance: FLUTICASONE PROPIONATE\SALMETEROL XINAFOATE
  33. SIMVASTATIN [Concomitant]
     Active Substance: SIMVASTATIN
  34. SIMVASTATIN [Concomitant]
     Active Substance: SIMVASTATIN
  35. EFFEXOR XR [Concomitant]
     Active Substance: VENLAFAXINE HYDROCHLORIDE
     Indication: Pain
     Dosage: 75MG
  36. OMEPRAZOLE [Concomitant]
     Active Substance: OMEPRAZOLE
  37. OMEPRAZOLE [Concomitant]
     Active Substance: OMEPRAZOLE
  38. TOPIRAMATE [Concomitant]
     Active Substance: TOPIRAMATE
     Indication: Pain
  39. TOPIRAMATE [Concomitant]
     Active Substance: TOPIRAMATE
  40. PRIMIDONE [Concomitant]
     Active Substance: PRIMIDONE
  41. PRIMIDONE [Concomitant]
     Active Substance: PRIMIDONE
  42. LEVOTHYROXINE SODIUM [Concomitant]
     Active Substance: LEVOTHYROXINE SODIUM
  43. LEVOTHYROXINE SODIUM [Concomitant]
     Active Substance: LEVOTHYROXINE SODIUM
  44. MELOXICAM [Concomitant]
     Active Substance: MELOXICAM
  45. MELOXICAM [Concomitant]
     Active Substance: MELOXICAM
  46. TRAMADOL HCL [Concomitant]
     Active Substance: TRAMADOL HYDROCHLORIDE
     Indication: Pain
     Dosage: 300MG
  47. TRAMADOL HCL [Concomitant]
     Active Substance: TRAMADOL HYDROCHLORIDE
  48. GRAMICIDIN\NEOMYCIN SULFATE\POLYMYXIN B SULFATE [Concomitant]
     Active Substance: GRAMICIDIN\NEOMYCIN SULFATE\POLYMYXIN B SULFATE
  49. DOXYCYCLINE [Concomitant]
     Active Substance: DOXYCYCLINE
  50. DELSYM [Concomitant]
     Active Substance: DEXTROMETHORPHAN
  51. ALGELDRATE\SODIUM ALGINATE [Concomitant]
     Active Substance: ALGELDRATE\SODIUM ALGINATE
  52. OCUVITE [ASCORBIC ACID;RETINOL;TOCOPHEROL] [Concomitant]
  53. VITAMIN D3 [Concomitant]
     Active Substance: CHOLECALCIFEROL
  54. VITAMIN B12 [Concomitant]
     Active Substance: CYANOCOBALAMIN
  55. ALBUTEROL\IPRATROPIUM [Concomitant]
     Active Substance: ALBUTEROL\IPRATROPIUM
  56. AZITHROMYCIN [Concomitant]
     Active Substance: AZITHROMYCIN
  57. EFFEXOR [Concomitant]
     Active Substance: VENLAFAXINE HYDROCHLORIDE
     Dosage: 75 MG CAP.SR 24H
  58. SINGULAIR [Concomitant]
     Active Substance: MONTELUKAST SODIUM
  59. NEOSPORIN+PAIN RELIEF [BACITRACIN ZINC;NEOMYCIN;POLYMYXIN B SULFATE;PR [Concomitant]
  60. LACTOBACILLUS ACIDOPHILUS [Concomitant]
     Active Substance: LACTOBACILLUS ACIDOPHILUS
  61. VITAMIN B COMPLEX WITH C [Concomitant]
     Active Substance: ASCORBIC ACID\CALCIUM PANTOTHENATE\CYANOCOBALAMIN\NIACINAMIDE\PYRIDOXINE HYDROCHLORIDE\RIBOFLAVIN\TH

REACTIONS (4)
  - Blister infected [Unknown]
  - Ulcer [Unknown]
  - Discharge [Unknown]
  - Product use in unapproved indication [Unknown]
